FAERS Safety Report 5533322-1 (Version None)
Quarter: 2007Q4

REPORT INFORMATION
  Report Type: 
  Country: None (occurrence: None)
  Receive Date: 20071204
  Receipt Date: 20071123
  Transmission Date: 20080405
  Serious: Yes (Hospitalization)
  Sender: FDA-Public Use
  Company Number: JP-ELI_LILLY_AND_COMPANY-JP200711002067

PATIENT
  Sex: Male
  Weight: 50 kg

DRUGS (7)
  1. ZYPREXA [Suspect]
     Indication: DEMENTIA
     Dosage: 2.5 MG, DAILY (1/D)
     Route: 048
     Dates: start: 20070925, end: 20071025
  2. LOXONIN [Concomitant]
     Indication: SPINAL OSTEOARTHRITIS
     Dosage: 3 D/F, 3/D
     Route: 048
     Dates: start: 20071013, end: 20071024
  3. MYONAL [Concomitant]
     Indication: SPINAL OSTEOARTHRITIS
     Dosage: 3 D/F, 3/D
     Route: 048
     Dates: start: 20071013, end: 20071024
  4. TANATRIL [Concomitant]
     Indication: HYPERTENSION
     Dosage: 5 MG, DAILY (1/D)
     Route: 048
  5. BUP-4 [Concomitant]
     Indication: BENIGN PROSTATIC HYPERPLASIA
     Dosage: 10 MG, DAILY (1/D)
     Route: 048
     Dates: end: 20071026
  6. HARNAL [Concomitant]
     Indication: BENIGN PROSTATIC HYPERPLASIA
     Dosage: 0.1 MG, DAILY (1/D)
     Route: 048
     Dates: end: 20071026
  7. NORVASC [Concomitant]
     Indication: HYPERTENSION
     Dosage: 5 MG, DAILY (1/D)
     Route: 048

REACTIONS (3)
  - C-REACTIVE PROTEIN INCREASED [None]
  - DERMATITIS EXFOLIATIVE [None]
  - LIVER DISORDER [None]
